FAERS Safety Report 21846848 (Version 1)
Quarter: 2023Q1

REPORT INFORMATION
  Report Type: Report from Study
  Country: JP (occurrence: JP)
  Receive Date: 20230111
  Receipt Date: 20230111
  Transmission Date: 20230417
  Serious: Yes (Death, Other)
  Sender: FDA-Public Use
  Company Number: JP-ORPHANEU-2023000067

PATIENT

DRUGS (14)
  1. CYSTADANE [Suspect]
     Active Substance: BETAINE
     Indication: Homocystinuria
     Dosage: 3 GRAM, BID
     Route: 065
     Dates: start: 20200910, end: 20201014
  2. CYSTADANE [Suspect]
     Active Substance: BETAINE
     Dosage: 3 GRAM, TID
     Route: 065
     Dates: start: 20201015, end: 20211123
  3. TEGRETOL [Concomitant]
     Active Substance: CARBAMAZEPINE
     Indication: Product used for unknown indication
     Dosage: 400 MILLIGRAM, BID
     Route: 048
     Dates: start: 20030108, end: 20211123
  4. PERICIAZINE [Concomitant]
     Active Substance: PERICIAZINE
     Indication: Product used for unknown indication
     Dosage: 20 MILLIGRAM, BID
     Route: 048
     Dates: start: 20030108, end: 20211123
  5. CYSTINE [Concomitant]
     Active Substance: CYSTINE
     Indication: Product used for unknown indication
     Dosage: 2.8 GRAM, BID
     Route: 048
     Dates: start: 20030108, end: 20211123
  6. TELMISARTAN [Concomitant]
     Active Substance: TELMISARTAN
     Indication: Product used for unknown indication
     Dosage: 20 MILLIGRAM, QD
     Route: 048
     Dates: start: 20100720, end: 20211123
  7. CILOSTAZOL [Concomitant]
     Active Substance: CILOSTAZOL
     Indication: Product used for unknown indication
     Dosage: 200 MILLIGRAM, BID
     Route: 048
     Dates: start: 20081127, end: 20211123
  8. CARVEDILOL [Concomitant]
     Active Substance: CARVEDILOL
     Indication: Product used for unknown indication
     Dosage: 10 MILLIGRAM, QD
     Route: 048
     Dates: start: 20140729, end: 20211123
  9. PYRIDOXAL [Concomitant]
     Active Substance: PYRIDOXAL
     Indication: Product used for unknown indication
     Dosage: 80 MILLIGRAM, BID
     Route: 048
     Dates: start: 20190516, end: 20211123
  10. BONALON [Concomitant]
     Active Substance: ALENDRONATE SODIUM
     Indication: Product used for unknown indication
     Dosage: 35 MILLIGRAM, QW
     Route: 048
     Dates: start: 20130801, end: 20211123
  11. METHYLCOBALAMIN [Concomitant]
     Active Substance: METHYLCOBALAMIN
     Indication: Product used for unknown indication
     Dosage: 1500 MICROGRAM, TID
     Route: 048
     Dates: start: 20070201, end: 20211123
  12. FOLIC ACID [Concomitant]
     Active Substance: FOLIC ACID
     Indication: Product used for unknown indication
     Dosage: 15 MILLIGRAM, TID
     Route: 048
     Dates: start: 20070201, end: 20211123
  13. AMBROXOL HYDROCHLORIDE [Concomitant]
     Active Substance: AMBROXOL HYDROCHLORIDE
     Indication: Product used for unknown indication
     Dosage: 45 MILLIGRAM, TID
     Route: 048
     Dates: start: 20120119, end: 20211123
  14. MAGNESIUM OXIDE [Concomitant]
     Active Substance: MAGNESIUM OXIDE
     Indication: Product used for unknown indication
     Dosage: 660 MILLIGRAM, BID
     Route: 048
     Dates: end: 20211123

REACTIONS (2)
  - Aortic dissection [Fatal]
  - Off label use [Recovered/Resolved]

NARRATIVE: CASE EVENT DATE: 20201015
